FAERS Safety Report 10021444 (Version 1)
Quarter: 2014Q1

REPORT INFORMATION
  Report Type: Report from Study
  Country: GB (occurrence: GB)
  Receive Date: 20140319
  Receipt Date: 20140319
  Transmission Date: 20141002
  Serious: Yes (Other)
  Sender: FDA-Public Use
  Company Number: GB-B.I. PHARMACEUTICALS,INC./RIDGEFIELD-2014-BI-11645GD

PATIENT
  Sex: Male

DRUGS (3)
  1. PRAMIPEXOLE [Suspect]
     Indication: PARKINSON^S DISEASE
     Dosage: 0.375 MG
     Route: 065
     Dates: start: 20060101, end: 20070101
  2. RASAGILINE [Suspect]
     Indication: PARKINSON^S DISEASE
     Dosage: 1 MG
     Route: 065
  3. STALEVO [Suspect]
     Indication: PARKINSON^S DISEASE
     Dosage: 1000 MG
     Route: 065

REACTIONS (2)
  - Impulse-control disorder [Unknown]
  - Dopamine dysregulation syndrome [Unknown]
